FAERS Safety Report 4645749-0 (Version None)
Quarter: 2005Q2

REPORT INFORMATION
  Report Type: 
  Country: None (occurrence: None)
  Receive Date: 20050425
  Receipt Date: 20050411
  Transmission Date: 20051028
  Serious: Yes (Death)
  Sender: FDA-Public Use
  Company Number: 2005035916

PATIENT
  Age: 70 Year
  Sex: Male
  Weight: 64.1 kg

DRUGS (7)
  1. IRINOTECAN HCL [Suspect]
     Indication: COLORECTAL CANCER RECURRENT
     Dosage: SEE IMAGE
     Route: 042
     Dates: start: 20040510, end: 20040510
  2. IRINOTECAN HCL [Suspect]
     Indication: COLORECTAL CANCER RECURRENT
     Dosage: SEE IMAGE
     Route: 042
     Dates: start: 20040530, end: 20040530
  3. IRINOTECAN HCL [Suspect]
     Indication: COLORECTAL CANCER RECURRENT
     Dosage: SEE IMAGE
     Route: 042
     Dates: start: 20040621, end: 20040621
  4. IRINOTECAN HCL [Suspect]
     Indication: COLORECTAL CANCER RECURRENT
     Dosage: SEE IMAGE
     Route: 042
     Dates: start: 20040711, end: 20040711
  5. TEGAFUR URACIL (TEGAFUR URACIL) [Suspect]
     Indication: COLORECTAL CANCER RECURRENT
     Dosage: ORAL
     Route: 048
     Dates: start: 20021112, end: 20040507
  6. TEGAFUR GIMERACIL/OTERACIL POTASSIUM  (TEGAFUR /GIMERACIL/OTERACIL POT [Suspect]
     Indication: COLORECTAL CANCER RECURRENT
     Dosage: SEE IMAGE
     Route: 048
     Dates: start: 20040510, end: 20040530
  7. TEGAFUR GIMERACIL/OTERACIL POTASSIUM  (TEGAFUR /GIMERACIL/OTERACIL POT [Suspect]
     Indication: COLORECTAL CANCER RECURRENT
     Dosage: SEE IMAGE
     Route: 048
     Dates: start: 20040621, end: 20040711

REACTIONS (6)
  - ACUTE RESPIRATORY DISTRESS SYNDROME [None]
  - ANOREXIA [None]
  - CONDITION AGGRAVATED [None]
  - INTERSTITIAL LUNG DISEASE [None]
  - NAUSEA [None]
  - PELVIC ABSCESS [None]
